FAERS Safety Report 13593443 (Version 9)
Quarter: 2018Q4

REPORT INFORMATION
  Report Type: Report from Study
  Country: FR (occurrence: FR)
  Receive Date: 20170530
  Receipt Date: 20181113
  Transmission Date: 20190204
  Serious: Yes (Other)
  Sender: FDA-Public Use
  Company Number: FR-BRISTOL-MYERS SQUIBB COMPANY-BMS-2017-045046

PATIENT
  Age: 57 Year
  Sex: Female

DRUGS (7)
  1. KEPPRA [Concomitant]
     Active Substance: LEVETIRACETAM
     Indication: PRODUCT USED FOR UNKNOWN INDICATION
     Route: 065
  2. ESOMEPRAZOLE. [Concomitant]
     Active Substance: ESOMEPRAZOLE MAGNESIUM
     Indication: PRODUCT USED FOR UNKNOWN INDICATION
     Route: 065
  3. NIVOLUMAB [Suspect]
     Active Substance: NIVOLUMAB
     Indication: LUNG NEOPLASM MALIGNANT
     Dosage: 180 MG/L, Q2WK
     Route: 042
     Dates: start: 20170223, end: 20170522
  4. PLAVIX [Concomitant]
     Active Substance: CLOPIDOGREL BISULFATE
     Indication: PRODUCT USED FOR UNKNOWN INDICATION
     Route: 065
  5. SERETIDE [Concomitant]
     Active Substance: FLUTICASONE PROPIONATE\SALMETEROL XINAFOATE
     Indication: PRODUCT USED FOR UNKNOWN INDICATION
     Route: 065
  6. TAHOR [Concomitant]
     Active Substance: ATORVASTATIN CALCIUM
     Indication: PRODUCT USED FOR UNKNOWN INDICATION
     Dosage: UNK
     Route: 065
  7. PLAQUENIL                          /00072602/ [Concomitant]
     Active Substance: HYDROXYCHLOROQUINE DIPHOSPHATE
     Indication: PRODUCT USED FOR UNKNOWN INDICATION
     Route: 065

REACTIONS (16)
  - Diarrhoea [Recovered/Resolved]
  - Fall [Recovered/Resolved]
  - Anaemia [Recovered/Resolved]
  - Renal abscess [Recovered/Resolved]
  - Bronchitis [Recovered/Resolved]
  - Clumsiness [Recovered/Resolved]
  - Thrombocytopenia [Recovered/Resolved]
  - Paraesthesia [Not Recovered/Not Resolved]
  - Hypomagnesaemia [Recovered/Resolved]
  - Blood cholesterol increased [Recovered/Resolved]
  - Urinary tract infection [Recovered/Resolved]
  - Pulmonary embolism [Recovering/Resolving]
  - Hepatic enzyme increased [Not Recovered/Not Resolved]
  - Lipase increased [Not Recovered/Not Resolved]
  - Epilepsy [Recovered/Resolved]
  - Blood bilirubin increased [Recovered/Resolved]

NARRATIVE: CASE EVENT DATE: 20170421
